FAERS Safety Report 21853953 (Version 1)
Quarter: 2023Q1

REPORT INFORMATION
  Report Type: Spontaneous
  Country: CN (occurrence: CN)
  Receive Date: 20230112
  Receipt Date: 20230112
  Transmission Date: 20230418
  Serious: Yes (Life-Threatening, Hospitalization, Other)
  Sender: FDA-Public Use
  Company Number: CN-PFIZER INC-PV202300005572

PATIENT
  Age: 28 Year
  Sex: Female

DRUGS (8)
  1. CYTARABINE [Suspect]
     Active Substance: CYTARABINE
     Indication: Myelosuppression
     Dosage: 0.16 G, 1X/DAY
     Route: 041
     Dates: start: 20221128, end: 20221204
  2. IDARUBICIN HYDROCHLORIDE [Suspect]
     Active Substance: IDARUBICIN HYDROCHLORIDE
     Indication: Myelosuppression
     Dosage: 20 MG, 1X/DAY
     Route: 041
     Dates: start: 20221128, end: 20221128
  3. IDARUBICIN HYDROCHLORIDE [Suspect]
     Active Substance: IDARUBICIN HYDROCHLORIDE
     Dosage: 16 MG, 1X/DAY
     Route: 041
     Dates: start: 20221129, end: 20221129
  4. IDARUBICIN HYDROCHLORIDE [Suspect]
     Active Substance: IDARUBICIN HYDROCHLORIDE
     Dosage: 10 MG, 1X/DAY
     Route: 041
     Dates: start: 20221130, end: 20221130
  5. SODIUM CHLORIDE [Concomitant]
     Active Substance: SODIUM CHLORIDE
     Indication: Vehicle solution use
     Dosage: 250 ML, 1X/DAY
     Route: 041
     Dates: start: 20221128, end: 20221204
  6. SODIUM CHLORIDE [Concomitant]
     Active Substance: SODIUM CHLORIDE
     Dosage: 100 ML, 1X/DAY
     Route: 041
     Dates: start: 20221128, end: 20221128
  7. SODIUM CHLORIDE [Concomitant]
     Active Substance: SODIUM CHLORIDE
     Dosage: 100 ML, 1X/DAY
     Route: 041
     Dates: start: 20221129, end: 20221129
  8. SODIUM CHLORIDE [Concomitant]
     Active Substance: SODIUM CHLORIDE
     Dosage: 100 ML, 1X/DAY
     Route: 041
     Dates: start: 20221130, end: 20221130

REACTIONS (1)
  - Myelosuppression [Recovering/Resolving]

NARRATIVE: CASE EVENT DATE: 20221222
